FAERS Safety Report 5571393-7 (Version None)
Quarter: 2007Q4

REPORT INFORMATION
  Report Type: 
  Country: None (occurrence: None)
  Receive Date: 20071221
  Receipt Date: 20071121
  Transmission Date: 20080405
  Serious: No
  Sender: FDA-Public Use
  Company Number: A0685324A

PATIENT
  Age: 69 Year
  Sex: Female

DRUGS (1)
  1. FLONASE [Suspect]
     Indication: ALLERGIC SINUSITIS
     Route: 045

REACTIONS (3)
  - PHARMACEUTICAL PRODUCT COMPLAINT [None]
  - RHINALGIA [None]
  - SINUS HEADACHE [None]
